FAERS Safety Report 17073954 (Version 2)
Quarter: 2019Q4

REPORT INFORMATION
  Report Type: Report from Study
  Country: US (occurrence: US)
  Receive Date: 20191126
  Receipt Date: 20191209
  Transmission Date: 20200122
  Serious: Yes (Death)
  Sender: FDA-Public Use
  Company Number: US-ROCHE-2474913

PATIENT
  Age: 89 Year
  Sex: Male

DRUGS (1)
  1. RITUXAN [Suspect]
     Active Substance: RITUXIMAB
     Indication: RHEUMATOID ARTHRITIS
     Dosage: INFUSE 1000MG INTRAVENOUSLY AS DIRECTED
     Route: 042
     Dates: start: 201803

REACTIONS (2)
  - Aneurysm ruptured [Fatal]
  - Death [Fatal]

NARRATIVE: CASE EVENT DATE: 20191015
